FAERS Safety Report 6906229-2 (Version None)
Quarter: 2010Q3

REPORT INFORMATION
  Report Type: 
  Country: None (occurrence: None)
  Receive Date: 20100803
  Receipt Date: 20100803
  Transmission Date: 20110219
  Serious: Yes (Disabling, Other)
  Sender: FDA-Public Use
  Company Number: None

PATIENT
  Sex: Female
  Weight: 70.5 kg

DRUGS (3)
  1. DYSPORT [Suspect]
     Indication: MIGRAINE
     Dosage: 500 UNITS 1
     Dates: start: 20100706
  2. DYSPORT [Suspect]
     Indication: MUSCULOSKELETAL PAIN
     Dosage: 500 UNITS 1
     Dates: start: 20100706
  3. DYSPORT [Suspect]
     Indication: NECK PAIN
     Dosage: 500 UNITS 1
     Dates: start: 20100706

REACTIONS (7)
  - ABDOMINAL DISCOMFORT [None]
  - ASTHENIA [None]
  - INFLUENZA LIKE ILLNESS [None]
  - MUSCULAR WEAKNESS [None]
  - MYALGIA [None]
  - PAIN [None]
  - RASH [None]
